FAERS Safety Report 12689865 (Version 1)
Quarter: 2016Q3

REPORT INFORMATION
  Report Type: Spontaneous
  Country: IT (occurrence: IT)
  Receive Date: 20160826
  Receipt Date: 20160826
  Transmission Date: 20161109
  Serious: Yes (Hospitalization)
  Sender: FDA-Public Use
  Company Number: IT-ELI_LILLY_AND_COMPANY-IT201608011375

PATIENT
  Age: 60 Year
  Sex: Male
  Weight: 67 kg

DRUGS (3)
  1. CYRAMZA [Suspect]
     Active Substance: RAMUCIRUMAB
     Indication: OESOPHAGEAL ADENOCARCINOMA
     Dosage: 8 MG/KG, CYCLICAL
     Route: 042
     Dates: start: 20160606, end: 20160627
  2. OMEPRAZOLE. [Concomitant]
     Active Substance: OMEPRAZOLE
     Dosage: 20 MG, UNK
     Route: 048
  3. PACLITAXEL. [Concomitant]
     Active Substance: PACLITAXEL
     Indication: OESOPHAGEAL ADENOCARCINOMA
     Dosage: 80 MG/M2, UNK
     Route: 042
     Dates: start: 20160606, end: 20160705

REACTIONS (2)
  - Diverticular perforation [Recovered/Resolved]
  - Diverticulitis [Recovered/Resolved]

NARRATIVE: CASE EVENT DATE: 20160715
